FAERS Safety Report 6311387-7 (Version None)
Quarter: 2009Q3

REPORT INFORMATION
  Report Type: 
  Country: None (occurrence: None)
  Receive Date: 20090817
  Receipt Date: 20090812
  Transmission Date: 20100115
  Serious: Yes (Hospitalization)
  Sender: FDA-Public Use
  Company Number: SE-BAYER-200928028GPV

PATIENT
  Age: 29 Year
  Sex: Male

DRUGS (2)
  1. CIPROFLOXACIN [Suspect]
     Indication: POSTOPERATIVE WOUND INFECTION
     Route: 048
     Dates: start: 20090407, end: 20090410
  2. FLAGYL [Suspect]
     Indication: POSTOPERATIVE WOUND INFECTION
     Dosage: UNIT DOSE: 400 MG
     Route: 048
     Dates: start: 20090407, end: 20090410

REACTIONS (2)
  - DISTURBANCE IN ATTENTION [None]
  - MENTAL DISORDER [None]
